FAERS Safety Report 9359719 (Version 2)
Quarter: 2013Q3

REPORT INFORMATION
  Report Type: Spontaneous
  Country: ID (occurrence: ID)
  Receive Date: 20130621
  Receipt Date: 20130727
  Transmission Date: 20140515
  Serious: Yes (Death, Hospitalization, Other)
  Sender: FDA-Public Use
  Company Number: ID-ROCHE-1238866

PATIENT
  Sex: 0

DRUGS (2)
  1. XOLAIR [Suspect]
     Indication: ASTHMA
     Route: 058
  2. XOLAIR [Suspect]
     Dosage: REGIMEN 2
     Route: 058

REACTIONS (7)
  - Pneumonia [Unknown]
  - Candida infection [Unknown]
  - Vertigo [Unknown]
  - Dermatitis [Unknown]
  - Dyspnoea [Unknown]
  - Blood immunoglobulin E increased [Unknown]
  - Death [Fatal]
